FAERS Safety Report 9631586 (Version 1)
Quarter: 2013Q4

REPORT INFORMATION
  Report Type: Spontaneous
  Country: PT (occurrence: PT)
  Receive Date: 20131018
  Receipt Date: 20131018
  Transmission Date: 20140711
  Serious: Yes (Death)
  Sender: FDA-Public Use
  Company Number: PT-ASTELLAS-2013US010734

PATIENT
  Age: 78 Year
  Sex: Female

DRUGS (3)
  1. AMBISOME [Suspect]
     Indication: FUNGAL INFECTION
     Dosage: 3 MG/KG, UID/QD
     Route: 065
     Dates: start: 20130809
  2. PRIMAQUINE [Concomitant]
     Indication: PRODUCT USED FOR UNKNOWN INDICATION
     Dosage: UNK
     Route: 065
  3. CO-TRIMOXAZOL [Concomitant]
     Indication: PRODUCT USED FOR UNKNOWN INDICATION
     Dosage: UNK
     Route: 065

REACTIONS (2)
  - Acute respiratory failure [Fatal]
  - Multi-organ failure [Fatal]
